FAERS Safety Report 15198240 (Version 2)
Quarter: 2018Q3

REPORT INFORMATION
  Report Type: Spontaneous
  Country: US (occurrence: US)
  Receive Date: 20180725
  Receipt Date: 20180824
  Transmission Date: 20181010
  Serious: No
  Sender: FDA-Public Use
  Company Number: US-009507513-1807USA011051

PATIENT
  Age: 24 Year
  Sex: Female
  Weight: 117.91 kg

DRUGS (3)
  1. MAXALT [Concomitant]
     Active Substance: RIZATRIPTAN BENZOATE
  2. NEXPLANON [Suspect]
     Active Substance: ETONOGESTREL
     Indication: POLYCYSTIC OVARIES
     Dosage: 1 DF, EVERY 3 YEARS
     Route: 059
     Dates: start: 20170607
  3. TRAZODONE HYDROCHLORIDE. [Concomitant]
     Active Substance: TRAZODONE HYDROCHLORIDE

REACTIONS (2)
  - Amenorrhoea [Unknown]
  - Product use in unapproved indication [Unknown]

NARRATIVE: CASE EVENT DATE: 2017
